FAERS Safety Report 5566850-3 (Version None)
Quarter: 2007Q4

REPORT INFORMATION
  Report Type: 
  Country: None (occurrence: None)
  Receive Date: 20071214
  Receipt Date: 20071128
  Transmission Date: 20080405
  Serious: Yes (Other)
  Sender: FDA-Public Use
  Company Number: 1-15553717

PATIENT
  Age: 31 Year
  Sex: Female

DRUGS (3)
  1. SOLODYN [Suspect]
     Indication: ACNE
     Dates: start: 20071007, end: 20071101
  2. DIFFERIN [Concomitant]
  3. UNSPECIFIED ORAL CONTRACEPTIVE [Concomitant]

REACTIONS (3)
  - ABORTION SPONTANEOUS [None]
  - DRUG EXPOSURE DURING PREGNANCY [None]
  - PREGNANCY ON ORAL CONTRACEPTIVE [None]
